FAERS Safety Report 7011805-5 (Version None)
Quarter: 2010Q3

REPORT INFORMATION
  Report Type: 
  Country: None (occurrence: None)
  Receive Date: 20100923
  Receipt Date: 20091222
  Transmission Date: 20110219
  Serious: No
  Sender: FDA-Public Use
  Company Number: US-WYE-H12768009

PATIENT
  Age: 45 Year
  Sex: Female
  Weight: 59.02 kg

DRUGS (1)
  1. ADVIL PM [Suspect]
     Indication: OROPHARYNGEAL PAIN
     Dosage: 1 CAPSULE AS NEEDED
     Route: 048
     Dates: start: 20091101, end: 20091221

REACTIONS (4)
  - DYSPHAGIA [None]
  - FOREIGN BODY [None]
  - PRODUCT SHAPE ISSUE [None]
  - RETCHING [None]
